FAERS Safety Report 9674085 (Version 2)
Quarter: 2014Q1

REPORT INFORMATION
  Report Type: Spontaneous
  Country: US (occurrence: US)
  Receive Date: 20131106
  Receipt Date: 20140102
  Transmission Date: 20141002
  Serious: No
  Sender: FDA-Public Use
  Company Number: US-AMGEN-USASP2013076451

PATIENT
  Age: 23 Year
  Sex: Female
  Weight: 81.63 kg

DRUGS (2)
  1. ENBREL [Suspect]
     Indication: PSORIASIS
     Dosage: UNK UNK, 2 TIMES/WK
     Route: 065
     Dates: start: 20111001, end: 201305
  2. PITOCIN                            /00071301/ [Concomitant]
     Dosage: UNK

REACTIONS (1)
  - Suppressed lactation [Unknown]
